FAERS Safety Report 19293657 (Version 1)
Quarter: 2021Q2

REPORT INFORMATION
  Report Type: Spontaneous
  Country: US (occurrence: US)
  Receive Date: 20210524
  Receipt Date: 20210524
  Transmission Date: 20210717
  Serious: Yes (Death)
  Sender: FDA-Public Use
  Company Number: None

PATIENT
  Age: 70 Year
  Sex: Male
  Weight: 116 kg

DRUGS (1)
  1. REMDESIVIR. [Suspect]
     Active Substance: REMDESIVIR
     Indication: COVID-19
     Route: 042
     Dates: start: 20200727, end: 20200731

REACTIONS (13)
  - Seizure [None]
  - Hypotension [None]
  - Chest discomfort [None]
  - Bradycardia [None]
  - Unresponsive to stimuli [None]
  - Hypovolaemic shock [None]
  - Cardio-respiratory arrest [None]
  - Septic shock [None]
  - Retroperitoneal haemorrhage [None]
  - Heart rate decreased [None]
  - Haemodialysis [None]
  - Retroperitoneal haematoma [None]
  - Multiple organ dysfunction syndrome [None]

NARRATIVE: CASE EVENT DATE: 20200806
